FAERS Safety Report 8503545-8 (Version None)
Quarter: 2012Q3

REPORT INFORMATION
  Report Type: 
  Country: None (occurrence: None)
  Receive Date: 20120711
  Receipt Date: 20120706
  Transmission Date: 20120928
  Serious: Yes (Hospitalization)
  Sender: FDA-Public Use
  Company Number: US-PFIZER INC-2012155346

PATIENT
  Sex: Female
  Weight: 72.562 kg

DRUGS (8)
  1. METHOTREXATE [Concomitant]
     Indication: OSTEOPOROSIS
     Dosage: 2.5 MG, WEEKLY
  2. PRAVASTATIN SODIUM [Concomitant]
     Dosage: 10 MG, DAILY
  3. FLUTICASONE [Concomitant]
     Indication: NASAL CONGESTION
  4. HYDROCHLOROTHIAZIDE [Suspect]
     Dosage: 12.5 MG DAILY
     Dates: start: 20120501
  5. ETANERCEPT [Concomitant]
     Indication: RHEUMATOID ARTHRITIS
     Dosage: 50 MG, WEEKLY
  6. NICOTROL [Suspect]
     Indication: SMOKING CESSATION THERAPY
     Dosage: UNK, 3X/DAY
     Dates: start: 20120309, end: 20120516
  7. FOLIC ACID [Concomitant]
     Indication: RHEUMATOID ARTHRITIS
     Dosage: 1 MG, DAILY
  8. FLUTICASONE [Concomitant]
     Indication: DYSPNOEA
     Dosage: UNK

REACTIONS (3)
  - HYPERTENSION [None]
  - HEADACHE [None]
  - DRUG INEFFECTIVE [None]
